FAERS Safety Report 9135146 (Version 1)
Quarter: 2013Q1

REPORT INFORMATION
  Report Type: Report from Study
  Country: BE (occurrence: BE)
  Receive Date: 20130304
  Receipt Date: 20130304
  Transmission Date: 20140127
  Serious: Yes (Death, Other)
  Sender: FDA-Public Use
  Company Number: BE-ASTELLAS-2013EU001823

PATIENT
  Sex: 0

DRUGS (5)
  1. PROGRAFT [Suspect]
     Indication: LIVER TRANSPLANT
     Dosage: 16 MG, UNKNOWN/D
     Route: 065
  2. SOLUCORTEF [Concomitant]
     Indication: ISCHAEMIA
     Dosage: 1000 MG, UNKNOWN/D
     Route: 065
  3. SOLUCORTEF [Concomitant]
     Dosage: 400 MG, UNKNOWN/D
     Route: 065
  4. SOLUCORTEF [Concomitant]
     Dosage: 200 MG, UNKNOWN/D
     Route: 065
  5. MEDROL                             /00049601/ [Concomitant]
     Indication: LIVER TRANSPLANT
     Dosage: UNK
     Route: 065

REACTIONS (3)
  - Hepatitis C [Fatal]
  - Hepatic cirrhosis [Fatal]
  - Post transplant lymphoproliferative disorder [Unknown]
